FAERS Safety Report 6750524-7 (Version None)
Quarter: 2010Q2

REPORT INFORMATION
  Report Type: 
  Country: None (occurrence: None)
  Receive Date: 20100528
  Receipt Date: 20100528
  Transmission Date: 20101027
  Serious: Yes (Life-Threatening)
  Sender: FDA-Public Use
  Company Number: None

PATIENT
  Age: 85 Year
  Sex: Male
  Weight: 79.4 kg

DRUGS (2)
  1. LEVAQUIN [Suspect]
     Indication: URINARY TRACT INFECTION
     Dosage: LEVAQUIN 500MG/100ML 100ML OVER 1HR QHS IV-042 X 1 DOSE
     Route: 042
     Dates: start: 20100519, end: 20100520
  2. ESCITALOPRAM [Concomitant]

REACTIONS (3)
  - CARDIAC ARREST [None]
  - DEPRESSED LEVEL OF CONSCIOUSNESS [None]
  - TORSADE DE POINTES [None]
